FAERS Safety Report 20802374 (Version 1)
Quarter: 2022Q2

REPORT INFORMATION
  Report Type: Spontaneous
  Country: US (occurrence: None)
  Receive Date: 20220507
  Receipt Date: 20220507
  Transmission Date: 20220721
  Serious: Yes (Hospitalization)
  Sender: FDA-Public Use
  Company Number: None

PATIENT
  Age: 69 Year
  Sex: Male
  Weight: 54.98 kg

DRUGS (3)
  1. DEXAMETHASONE [Suspect]
     Active Substance: DEXAMETHASONE
     Indication: Plasma cell myeloma
     Dates: end: 20220427
  2. DARATUMUMAB [Suspect]
     Active Substance: DARATUMUMAB
     Indication: Plasma cell myeloma
     Dates: end: 20220420
  3. LENALIDOMIDE [Suspect]
     Active Substance: LENALIDOMIDE
     Indication: Plasma cell myeloma
     Dates: end: 20220428

REACTIONS (15)
  - Pneumonia [None]
  - Sepsis [None]
  - Haemoglobin decreased [None]
  - Blood lactic acid increased [None]
  - Acute kidney injury [None]
  - Procalcitonin increased [None]
  - Heart rate increased [None]
  - Hypotension [None]
  - Staphylococcal bacteraemia [None]
  - Agonal respiration [None]
  - Bradycardia [None]
  - Apnoea [None]
  - Endocarditis [None]
  - Pain in extremity [None]
  - Shock [None]

NARRATIVE: CASE EVENT DATE: 20220429
